FAERS Safety Report 6110347-9 (Version None)
Quarter: 2009Q1

REPORT INFORMATION
  Report Type: 
  Country: None (occurrence: None)
  Receive Date: 20090310
  Receipt Date: 20090120
  Transmission Date: 20090719
  Serious: Yes (Hospitalization)
  Sender: FDA-Public Use
  Company Number: FR-PFIZER INC-2009160631

PATIENT

DRUGS (10)
  1. ALPRAZOLAM [Suspect]
     Dosage: 50 MG, 1X/DAY
     Route: 048
     Dates: start: 20080101, end: 20081103
  2. ALPRAZOLAM [Suspect]
     Dosage: 25 MG, 1X/DAY
     Route: 048
     Dates: start: 20081103
  3. ARICEPT [Suspect]
     Dosage: 5 MG, 1X/DAY
     Route: 048
     Dates: start: 20081015, end: 20081103
  4. ZOLPIDEM [Suspect]
     Dosage: 1 DF, 1X/DAY
     Route: 048
     Dates: start: 20080101
  5. TERCIAN [Suspect]
     Dosage: 25 MG, 1X/DAY
     Route: 048
     Dates: start: 20081015
  6. DEROXAT [Suspect]
     Dosage: 1 DF, 1X/DAY
     Route: 048
     Dates: start: 20081015
  7. COZAAR [Concomitant]
     Dosage: 100 MG, 1X/DAY
     Route: 048
     Dates: start: 20070101
  8. ESIDRIX [Concomitant]
     Dosage: 25 MG, 1X/DAY
     Route: 048
     Dates: start: 20070101, end: 20081103
  9. BISOPROLOL [Concomitant]
     Dosage: 10 MG, 1X/DAY
     Route: 048
     Dates: start: 20080101
  10. NORFLOXACIN [Concomitant]
     Dosage: UNK
     Dates: start: 20081001, end: 20081104

REACTIONS (2)
  - FALL [None]
  - HYPONATRAEMIA [None]
